FAERS Safety Report 10790490 (Version 8)
Quarter: 2015Q4

REPORT INFORMATION
  Report Type: Report from Study
  Country: AU (occurrence: AU)
  Receive Date: 20150212
  Receipt Date: 20151117
  Transmission Date: 20160304
  Serious: Yes (Death, Life-Threatening, Hospitalization, Disabling, Other)
  Sender: FDA-Public Use
  Company Number: AU-ABBVIE-14P-008-1316252-00

PATIENT
  Age: 63 Year
  Sex: Male
  Weight: 61 kg

DRUGS (10)
  1. DUODOPA [Suspect]
     Active Substance: CARBIDOPA\LEVODOPA
     Dosage: DECREASED RATE
     Route: 050
  2. OXYCODONE [Concomitant]
     Active Substance: OXYCODONE
     Indication: PRODUCT USED FOR UNKNOWN INDICATION
     Dosage: 1-2 TABLETS EVERY 4-6 HOURS AS REQUIRED
     Route: 048
  3. LOPERAMIDE [Concomitant]
     Active Substance: LOPERAMIDE
     Indication: PRODUCT USED FOR UNKNOWN INDICATION
     Dosage: AT NIGHT
     Route: 048
  4. DUODOPA [Suspect]
     Active Substance: CARBIDOPA\LEVODOPA
     Dosage: 1 CASETTE, 2.2MLS
     Route: 050
     Dates: start: 20150218, end: 20150320
  5. PARACETAMOL [Concomitant]
     Active Substance: ACETAMINOPHEN
     Indication: PRODUCT USED FOR UNKNOWN INDICATION
     Route: 048
  6. REBOXETINE [Concomitant]
     Active Substance: REBOXETINE
     Indication: PRODUCT USED FOR UNKNOWN INDICATION
     Route: 048
  7. PRAMIPEXOLE. [Concomitant]
     Active Substance: PRAMIPEXOLE
     Indication: PARKINSON^S DISEASE
     Route: 048
  8. SINEMET [Concomitant]
     Active Substance: CARBIDOPA\LEVODOPA
     Indication: PARKINSON^S DISEASE
     Dosage: 1 TABLET AT NIGHT
     Route: 048
     Dates: end: 20150320
  9. CALCIUM/CHOLECALCIFEROL [Concomitant]
     Indication: PRODUCT USED FOR UNKNOWN INDICATION
     Dosage: 600MG-12.5MICROGRAM
     Route: 048
  10. DUODOPA [Suspect]
     Active Substance: CARBIDOPA\LEVODOPA
     Indication: PARKINSON^S DISEASE
     Route: 050

REACTIONS (15)
  - Colorectal cancer metastatic [Fatal]
  - Intestinal perforation [Recovered/Resolved with Sequelae]
  - Intestinal obstruction [Fatal]
  - Emotional distress [Unknown]
  - Colon cancer metastatic [Fatal]
  - Metastases to liver [Not Recovered/Not Resolved]
  - Metastases to lung [Not Recovered/Not Resolved]
  - Fatigue [Not Recovered/Not Resolved]
  - Gastrointestinal carcinoma [Unknown]
  - Weight decreased [Not Recovered/Not Resolved]
  - Infection [Unknown]
  - Asthenia [Not Recovered/Not Resolved]
  - General physical health deterioration [Unknown]
  - Stoma site pain [Recovered/Resolved with Sequelae]
  - Weight decreased [Not Recovered/Not Resolved]

NARRATIVE: CASE EVENT DATE: 201409
